FAERS Safety Report 18664317 (Version 1)
Quarter: 2020Q4

REPORT INFORMATION
  Report Type: Spontaneous
  Country: AU (occurrence: AU)
  Receive Date: 20201225
  Receipt Date: 20201225
  Transmission Date: 20210114
  Serious: Yes (Hospitalization)
  Sender: FDA-Public Use
  Company Number: AU-VIFOR (INTERNATIONAL) INC.-VIT-2020-12408

PATIENT
  Age: 58 Year
  Sex: Male

DRUGS (1)
  1. MIRCERA [Suspect]
     Active Substance: METHOXY POLYETHYLENE GLYCOL-EPOETIN BETA
     Indication: PRODUCT USED FOR UNKNOWN INDICATION
     Route: 042
     Dates: start: 20200601

REACTIONS (8)
  - Dyspnoea [Unknown]
  - Therapeutic product cross-reactivity [Unknown]
  - Cardiac arrest [Unknown]
  - Rash [Unknown]
  - Ventricular fibrillation [Unknown]
  - Loss of consciousness [Unknown]
  - Anaphylactic reaction [Unknown]
  - Periorbital oedema [Unknown]

NARRATIVE: CASE EVENT DATE: 2020
